FAERS Safety Report 7122081-7 (Version None)
Quarter: 2010Q4

REPORT INFORMATION
  Report Type: 
  Country: None (occurrence: None)
  Receive Date: 20101122
  Receipt Date: 20101122
  Transmission Date: 20110411
  Serious: Yes (Other)
  Sender: FDA-Public Use
  Company Number: None

PATIENT
  Age: 52 Year
  Sex: Female

DRUGS (4)
  1. AMPYRA [Suspect]
     Indication: MULTIPLE SCLEROSIS
     Dosage: AMPYRA 10MG EVERY 12 HORUS ORAL
     Route: 048
     Dates: start: 20100811, end: 20101021
  2. AVONEX [Concomitant]
  3. GABAPENTIN [Concomitant]
  4. CYANOCOBALOMIN [Concomitant]

REACTIONS (2)
  - PAIN IN EXTREMITY [None]
  - PAIN IN JAW [None]
